FAERS Safety Report 24638460 (Version 1)
Quarter: 2024Q4

REPORT INFORMATION
  Report Type: Spontaneous
  Country: US (occurrence: None)
  Receive Date: 20241119
  Receipt Date: 20241119
  Transmission Date: 20250114
  Serious: Yes (Life-Threatening)
  Sender: Public
  Company Number: None

PATIENT
  Age: 34 Year
  Sex: Male

DRUGS (1)
  1. LOSARTAN [Suspect]
     Active Substance: LOSARTAN
     Dosage: FREQUENCY : DAILY;?
     Route: 048

REACTIONS (3)
  - Angioedema [None]
  - Dysphagia [None]
  - Enlarged uvula [None]

NARRATIVE: CASE EVENT DATE: 20240614
